FAERS Safety Report 11272015 (Version 1)
Quarter: 2015Q3

REPORT INFORMATION
  Report Type: Spontaneous
  Country: US (occurrence: None)
  Receive Date: 20150713
  Receipt Date: 20150713
  Transmission Date: 20151125
  Serious: Yes (Other)
  Sender: FDA-Public Use
  Company Number: None

PATIENT
  Age: 57 Year
  Sex: Female
  Weight: 97.98 kg

DRUGS (2)
  1. SPIRIVA [Concomitant]
     Active Substance: TIOTROPIUM BROMIDE MONOHYDRATE
  2. METFORMIN [Suspect]
     Active Substance: METFORMIN HYDROCHLORIDE
     Indication: DIABETES MELLITUS
     Route: 048
     Dates: start: 20150701, end: 20150704

REACTIONS (17)
  - Dizziness [None]
  - Muscle disorder [None]
  - Weight increased [None]
  - Pneumonia [None]
  - Vomiting [None]
  - Nausea [None]
  - Pollakiuria [None]
  - Vision blurred [None]
  - Lethargy [None]
  - Feeling cold [None]
  - Fatigue [None]
  - Vertigo [None]
  - Hyperhidrosis [None]
  - Headache [None]
  - Swelling face [None]
  - Disorientation [None]
  - Dehydration [None]

NARRATIVE: CASE EVENT DATE: 20150704
